FAERS Safety Report 6028358-0 (Version None)
Quarter: 2009Q1

REPORT INFORMATION
  Report Type: 
  Country: None (occurrence: None)
  Receive Date: 20090106
  Receipt Date: 20081230
  Transmission Date: 20090719
  Serious: Yes (Hospitalization)
  Sender: FDA-Public Use
  Company Number: ES-BRISTOL-MYERS SQUIBB COMPANY-14460653

PATIENT
  Age: 64 Year
  Sex: Male

DRUGS (2)
  1. ERBITUX [Suspect]
     Indication: BLADDER CANCER
     Dosage: STOPPED ON 20-FEB-2008.
     Route: 042
     Dates: start: 20080126, end: 20080126
  2. IRINOTECAN HCL [Suspect]
     Indication: BLADDER CANCER
     Dosage: STOPPED ON 20-FEB-2008.
     Route: 042
     Dates: start: 20080126, end: 20080126

REACTIONS (1)
  - PLATELET COUNT DECREASED [None]
